FAERS Safety Report 5575152-0 (Version None)
Quarter: 2007Q4

REPORT INFORMATION
  Report Type: 
  Country: None (occurrence: None)
  Receive Date: 20071227
  Receipt Date: 20071217
  Transmission Date: 20080405
  Serious: Yes (Disabling, Other)
  Sender: FDA-Public Use
  Company Number: JP-PFIZER INC-2007106688

PATIENT
  Sex: Female

DRUGS (20)
  1. CELECOX [Suspect]
     Indication: RHEUMATOID ARTHRITIS
     Dosage: DAILY DOSE:400MG
     Route: 048
  2. PROGRAF [Suspect]
     Indication: RHEUMATOID ARTHRITIS
     Dosage: DAILY DOSE:1MG
     Route: 048
  3. DARBEPOETIN ALFA [Suspect]
     Indication: RENAL FAILURE CHRONIC
     Dosage: DAILY DOSE:40MCG
     Route: 042
  4. ELCITONIN [Suspect]
     Indication: SPINAL COMPRESSION FRACTURE
     Route: 042
  5. OMEPRAL [Concomitant]
     Indication: REFLUX OESOPHAGITIS
     Dosage: DAILY DOSE:10MG
     Route: 048
  6. ARTIST [Concomitant]
     Indication: HYPERTENSION
     Dosage: DAILY DOSE:2.5MG
     Route: 048
  7. MYSLEE [Concomitant]
     Indication: INSOMNIA
     Dosage: DAILY DOSE:10MG
     Route: 048
  8. DEPAS [Concomitant]
     Indication: INSOMNIA
     Route: 048
  9. CALBLOCK [Concomitant]
     Indication: HYPERTENSION
     Dosage: DAILY DOSE:16MG
     Route: 048
  10. OLMETEC [Concomitant]
     Indication: HYPERTENSION
     Dosage: DAILY DOSE:40MG
     Route: 048
  11. ACECOL [Concomitant]
     Indication: HYPERTENSION
     Dosage: DAILY DOSE:2MG
     Route: 048
  12. LASIX [Concomitant]
     Indication: RENAL FAILURE CHRONIC
     Dosage: DAILY DOSE:40MG
     Route: 048
  13. PREDONINE [Concomitant]
     Indication: RHEUMATOID ARTHRITIS
     Dosage: DAILY DOSE:10MG
     Route: 048
  14. VASOLAN [Concomitant]
     Indication: ATRIAL FIBRILLATION
     Dosage: DAILY DOSE:120MG
     Route: 048
     Dates: start: 20070310, end: 20071012
  15. CALTAN [Concomitant]
     Indication: HYPERTENSION
     Dosage: DAILY DOSE:1.5GRAM
     Route: 048
  16. BASEN [Concomitant]
     Indication: DIABETES MELLITUS
     Dosage: DAILY DOSE:.6MG
     Route: 048
  17. ROCALTROL [Concomitant]
     Indication: HYPERTENSION
     Dosage: DAILY DOSE:.2MCG
     Route: 048
  18. BEPRICOR [Concomitant]
     Indication: ATRIAL FIBRILLATION
     Dosage: DAILY DOSE:50MG
     Route: 048
  19. WARFARIN SODIUM [Concomitant]
     Indication: ATRIAL FIBRILLATION
     Dosage: DAILY DOSE:1MG
     Route: 048
  20. ANPLAG [Concomitant]
     Indication: ARTERIOSCLEROSIS OBLITERANS
     Dosage: DAILY DOSE:200MG
     Route: 048

REACTIONS (3)
  - APHASIA [None]
  - CEREBRAL INFARCTION [None]
  - HEMIPLEGIA [None]
